FAERS Safety Report 11795420 (Version 2)
Quarter: 2016Q1

REPORT INFORMATION
  Report Type: Spontaneous
  Country: US (occurrence: US)
  Receive Date: 20151202
  Receipt Date: 20160302
  Transmission Date: 20160525
  Serious: No
  Sender: FDA-Public Use
  Company Number: US-SA-2015SA182412

PATIENT
  Age: 27 Year
  Sex: Male
  Weight: 84.9 kg

DRUGS (1)
  1. CERDELGA [Suspect]
     Active Substance: ELIGLUSTAT
     Indication: GAUCHER^S DISEASE TYPE I
     Route: 065
     Dates: start: 20150327

REACTIONS (1)
  - Pregnancy of partner [Unknown]

NARRATIVE: CASE EVENT DATE: 201511
